FAERS Safety Report 14254353 (Version 1)
Quarter: 2017Q4

REPORT INFORMATION
  Report Type: Spontaneous
  Country: US (occurrence: US)
  Receive Date: 20171205
  Receipt Date: 20171205
  Transmission Date: 20180321
  Serious: Yes (Death, Hospitalization, Other)
  Sender: FDA-Public Use
  Company Number: US-GLAXOSMITHKLINE-US2017GSK183408

PATIENT
  Age: 51 Year
  Sex: Female

DRUGS (4)
  1. TRAZODONE [Suspect]
     Active Substance: TRAZODONE HYDROCHLORIDE
     Route: 048
  2. SERTRALINE [Suspect]
     Active Substance: SERTRALINE HYDROCHLORIDE
     Route: 048
  3. BUPROPION. [Suspect]
     Active Substance: BUPROPION
     Route: 048
  4. SODIUM HYDROXIDE. [Suspect]
     Active Substance: SODIUM HYDROXIDE
     Route: 048

REACTIONS (2)
  - Cardio-respiratory arrest [Unknown]
  - Completed suicide [Fatal]
